FAERS Safety Report 10308531 (Version 5)
Quarter: 2014Q3

REPORT INFORMATION
  Report Type: Spontaneous
  Country: US (occurrence: US)
  Receive Date: 20140716
  Receipt Date: 20140829
  Transmission Date: 20150326
  Serious: No
  Sender: FDA-Public Use
  Company Number: US-TEVA-495187USA

PATIENT
  Age: 33 Year
  Sex: Female
  Weight: 56.3 kg

DRUGS (1)
  1. PLAN B ONE-STEP [Suspect]
     Active Substance: LEVONORGESTREL
     Indication: POST COITAL CONTRACEPTION
     Dosage: 1.5 MILLIGRAM DAILY;
     Route: 048
     Dates: start: 20140705, end: 20140705

REACTIONS (5)
  - Stress [Recovered/Resolved]
  - Menstruation irregular [Recovered/Resolved]
  - Menstruation delayed [Recovered/Resolved]
  - Pelvic pain [Recovered/Resolved]
  - Pain [Recovered/Resolved]

NARRATIVE: CASE EVENT DATE: 20140705
